FAERS Safety Report 15654601 (Version 2)
Quarter: 2018Q4

REPORT INFORMATION
  Report Type: Spontaneous
  Country: US (occurrence: US)
  Receive Date: 20181126
  Receipt Date: 20181204
  Transmission Date: 20190205
  Serious: Yes (Hospitalization, Other)
  Sender: FDA-Public Use
  Company Number: US-009507513-1504USA014164

PATIENT
  Age: 55 Year
  Sex: Female

DRUGS (1)
  1. CUBICIN [Suspect]
     Active Substance: DAPTOMYCIN
     Indication: SECONDARY PROGRESSIVE MULTIPLE SCLEROSIS
     Dosage: 4 MG/KG, QD
     Route: 042

REACTIONS (6)
  - Seizure [Unknown]
  - Gait disturbance [Unknown]
  - Mental status changes [Unknown]
  - Visual impairment [Unknown]
  - Muscle spasms [Unknown]
  - Confusional state [Unknown]
